FAERS Safety Report 5214298-3 (Version None)
Quarter: 2007Q1

REPORT INFORMATION
  Report Type: 
  Country: None (occurrence: None)
  Receive Date: 20070122
  Receipt Date: 20070110
  Transmission Date: 20070707
  Serious: Yes (Life-Threatening)
  Sender: FDA-Public Use
  Company Number: JP-MERCK-0612USA01168

PATIENT
  Age: 70 Year
  Sex: Female

DRUGS (8)
  1. PEPCID [Suspect]
     Indication: DUODENAL ULCER
     Route: 041
     Dates: start: 20061026, end: 20061130
  2. VFEND [Suspect]
     Indication: ASPERGILLOSIS
     Route: 041
     Dates: start: 20061214
  3. VFEND [Suspect]
     Route: 041
     Dates: start: 20061109, end: 20061130
  4. DENOSINE [Concomitant]
     Indication: CYTOMEGALOVIRUS ENTEROCOLITIS
     Route: 041
     Dates: start: 20061019, end: 20061113
  5. HUMULIN 70/30 [Concomitant]
     Indication: DIABETES MELLITUS
     Route: 041
     Dates: start: 20061019
  6. SOLCOSERYL [Concomitant]
     Indication: DUODENAL ULCER
     Route: 042
     Dates: start: 20061019
  7. PREDONINE [Concomitant]
     Indication: WEGENER'S GRANULOMATOSIS
     Route: 048
     Dates: start: 20060727
  8. ENDOXAN [Concomitant]
     Indication: WEGENER'S GRANULOMATOSIS
     Route: 048
     Dates: start: 20060801, end: 20061013

REACTIONS (1)
  - GRANULOCYTE COUNT DECREASED [None]
